FAERS Safety Report 4759605-0 (Version None)
Quarter: 2005Q3

REPORT INFORMATION
  Report Type: 
  Country: None (occurrence: None)
  Receive Date: 20050901
  Receipt Date: 20050315
  Transmission Date: 20060218
  Serious: Yes (Hospitalization, Disabling)
  Sender: FDA-Public Use
  Company Number: US-MERCK-0503USA02867

PATIENT
  Age: 62 Year
  Sex: Female
  Weight: 93 kg

DRUGS (27)
  1. DARVON [Concomitant]
     Route: 065
  2. ACIPHEX [Concomitant]
     Route: 065
  3. LIPITOR [Concomitant]
     Route: 065
  4. ZOLOFT [Concomitant]
     Route: 048
  5. BISACODYL [Concomitant]
     Indication: CONSTIPATION
     Route: 048
  6. OXYCONTIN [Concomitant]
     Route: 048
  7. ANTIVERT [Concomitant]
     Route: 048
  8. COLACE [Concomitant]
     Route: 048
  9. LACTULOSE [Concomitant]
     Route: 065
  10. VIOXX [Suspect]
     Indication: BACK PAIN
     Route: 048
     Dates: start: 20030101, end: 20040101
  11. VIOXX [Suspect]
     Route: 048
     Dates: start: 20040101, end: 20040101
  12. HYDRODIURIL [Concomitant]
     Indication: HYPERTENSION
     Route: 048
     Dates: start: 20021231
  13. ZESTORETIC [Concomitant]
     Indication: HYPERTENSION
     Route: 048
     Dates: start: 20010226, end: 20040103
  14. FLEXERIL [Concomitant]
     Indication: BACK PAIN
     Route: 048
     Dates: start: 20040312, end: 20040609
  15. HYDROCODONE HYDROCHLORIDE [Concomitant]
     Indication: PAIN
     Route: 048
     Dates: start: 20020423
  16. PROPACET 100 [Concomitant]
     Indication: PAIN
     Route: 048
     Dates: start: 19960419
  17. ACETAMINOPHEN AND PROPOXYPHENE HYDROCHLORIDE [Concomitant]
     Indication: PAIN
     Route: 048
     Dates: start: 20040428, end: 20040606
  18. ROXICET [Concomitant]
     Indication: PAIN
     Route: 048
     Dates: start: 20000612
  19. TYLENOL W/ CODEINE [Concomitant]
     Indication: PAIN
     Route: 048
     Dates: start: 19960417, end: 20040409
  20. NEXIUM [Concomitant]
     Indication: GASTROOESOPHAGEAL REFLUX DISEASE
     Route: 048
     Dates: start: 20031001
  21. PREVACID [Concomitant]
     Indication: GASTROOESOPHAGEAL REFLUX DISEASE
     Route: 048
     Dates: start: 20031001
  22. RAMIPRIL [Concomitant]
     Route: 048
  23. TYLENOL [Concomitant]
     Route: 065
  24. FLONASE [Concomitant]
     Route: 055
  25. PROTONIX [Concomitant]
     Route: 048
  26. DARVOCET-N 100 [Concomitant]
     Route: 065
  27. AMBIEN [Concomitant]
     Route: 065

REACTIONS (10)
  - ADJUSTMENT DISORDER WITH DEPRESSED MOOD [None]
  - BACK INJURY [None]
  - BACK PAIN [None]
  - BLOOD PRESSURE ABNORMAL [None]
  - CAROTID ARTERY STENOSIS [None]
  - CEREBRAL ARTERY OCCLUSION [None]
  - CEREBRAL INFARCTION [None]
  - ESCHERICHIA URINARY TRACT INFECTION [None]
  - HYPERCHOLESTEROLAEMIA [None]
  - ISCHAEMIC STROKE [None]
